FAERS Safety Report 20764197 (Version 12)
Quarter: 2022Q4

REPORT INFORMATION
  Report Type: Spontaneous
  Country: US (occurrence: US)
  Receive Date: 20220428
  Receipt Date: 20221122
  Transmission Date: 20230113
  Serious: Yes (Death, Hospitalization)
  Sender: FDA-Public Use
  Company Number: US-KARYOPHARM-2022KPT000456

PATIENT

DRUGS (17)
  1. XPOVIO [Suspect]
     Active Substance: SELINEXOR
     Indication: Plasma cell myeloma
     Dosage: 60 MG, WEEKLY, ON DAY 1 OF EACH WEEK
     Route: 048
     Dates: start: 20200825
  2. XPOVIO [Suspect]
     Active Substance: SELINEXOR
     Dosage: 80 MG, WEEKLY ON DAYS 1, 8, 15, AND 22
     Route: 048
     Dates: start: 202203
  3. XPOVIO [Suspect]
     Active Substance: SELINEXOR
     Dosage: 60 MG, WEEKLY
     Route: 048
     Dates: start: 202204
  4. XPOVIO [Suspect]
     Active Substance: SELINEXOR
     Dosage: 60 MG, WEEKLY, DAYS 1, 8, AND 15 OF A 28-DAY CYCLE
     Route: 048
     Dates: start: 202204, end: 20220509
  5. XPOVIO [Suspect]
     Active Substance: SELINEXOR
     Dosage: 60 MG, WEEKLY
     Route: 048
     Dates: start: 2022, end: 202209
  6. XPOVIO [Suspect]
     Active Substance: SELINEXOR
     Dosage: 40 MG, ON DAYS 1, 5, AND 18
     Route: 048
     Dates: start: 202209, end: 202210
  7. XPOVIO [Suspect]
     Active Substance: SELINEXOR
     Dosage: 40 MG, WEEKLY FOR 3 WEEKS WITH 1 WEEK OFF
     Route: 048
     Dates: start: 202210, end: 20221112
  8. ZYPREXA [Concomitant]
     Active Substance: OLANZAPINE
  9. PROCHLORPERAZINE [Concomitant]
     Active Substance: PROCHLORPERAZINE
  10. ACYCLOVIR [Concomitant]
     Active Substance: ACYCLOVIR
  11. ALLOPURINOL [Concomitant]
     Active Substance: ALLOPURINOL
  12. ATENOLOL [Concomitant]
     Active Substance: ATENOLOL
  13. ATORVASTATIN [Concomitant]
     Active Substance: ATORVASTATIN
  14. DIGOXIN [Concomitant]
     Active Substance: DIGOXIN
  15. ELIQUIS [Concomitant]
     Active Substance: APIXABAN
  16. ONDANSETRON [Concomitant]
     Active Substance: ONDANSETRON
  17. MIRTAZAPINE [Concomitant]
     Active Substance: MIRTAZAPINE
     Dosage: 15 MG, QD

REACTIONS (12)
  - Death [Fatal]
  - Gastrointestinal pain [Unknown]
  - Haematemesis [Unknown]
  - Hypotension [Unknown]
  - Pneumonia [Recovering/Resolving]
  - Haemoglobin decreased [Unknown]
  - Thirst decreased [Unknown]
  - Platelet count decreased [Not Recovered/Not Resolved]
  - Fatigue [Not Recovered/Not Resolved]
  - Decreased appetite [Not Recovered/Not Resolved]
  - Asthenia [Unknown]
  - Drug ineffective [Unknown]

NARRATIVE: CASE EVENT DATE: 20220101
